FAERS Safety Report 19760678 (Version 1)
Quarter: 2021Q3

REPORT INFORMATION
  Report Type: Spontaneous
  Country: BE (occurrence: BE)
  Receive Date: 20210830
  Receipt Date: 20210830
  Transmission Date: 20211014
  Serious: Yes (Other)
  Sender: FDA-Public Use
  Company Number: BE-HQ SPECIALTY-BE-2021INT000149

PATIENT

DRUGS (6)
  1. FOLIC ACID. [Suspect]
     Active Substance: FOLIC ACID
     Indication: SUPPLEMENTATION THERAPY
     Dosage: 350?600 MCG
     Route: 065
  2. RADIOTHERAPY [Suspect]
     Active Substance: RADIATION THERAPY
     Indication: SMALL CELL LUNG CANCER
     Dosage: 50?66 GY
     Route: 065
  3. PEMETREXED. [Suspect]
     Active Substance: PEMETREXED
     Indication: SMALL CELL LUNG CANCER
     Dosage: ESCALATING DOSES 400?500MG/M2
     Route: 042
  4. CISPLATIN. [Suspect]
     Active Substance: CISPLATIN
     Indication: SMALL CELL LUNG CANCER
     Dosage: 75 MG/M2, ON DAY 1 OF A 21 DAY CYCLE
     Route: 042
  5. VITAMIN B12 [Suspect]
     Active Substance: CYANOCOBALAMIN
     Indication: SUPPLEMENTATION THERAPY
     Dosage: 1000 ?G, 1?2 WEEKS PRIOR TO 1ST DOSE OF PEMETREXED AND REPEATED EVERY 9 WEEKS
     Route: 030
  6. DEXAMETHASONE. [Suspect]
     Active Substance: DEXAMETHASONE
     Indication: SUPPLEMENTATION THERAPY
     Dosage: TREATED THE DAY BEFORE, THE DAY OF AND DAY AFTER EACH DOSE OF PEMETREXED
     Route: 065

REACTIONS (1)
  - Oesophagitis [Unknown]
